FAERS Safety Report 13203206 (Version 14)
Quarter: 2018Q4

REPORT INFORMATION
  Report Type: Report from Study
  Country: CA (occurrence: CA)
  Receive Date: 20170209
  Receipt Date: 20181114
  Transmission Date: 20190204
  Serious: Yes (Other)
  Sender: FDA-Public Use
  Company Number: CA-BRISTOL-MYERS SQUIBB COMPANY-BMS-2016-068113

PATIENT
  Age: 71 Year
  Sex: Female

DRUGS (5)
  1. ABATACEPT [Suspect]
     Active Substance: ABATACEPT
     Indication: RHEUMATOID ARTHRITIS
     Dosage: 750 MG, Q4WK
     Route: 042
     Dates: start: 20070911
  2. PANTOLOC                           /01263204/ [Concomitant]
     Active Substance: PANTOPRAZOLE SODIUM
     Indication: PRODUCT USED FOR UNKNOWN INDICATION
     Dosage: UNK
     Route: 065
  3. ABATACEPT [Suspect]
     Active Substance: ABATACEPT
     Indication: PSORIATIC ARTHROPATHY
     Route: 065
  4. PLAQUENIL                          /00072602/ [Concomitant]
     Active Substance: HYDROXYCHLOROQUINE DIPHOSPHATE
     Indication: PRODUCT USED FOR UNKNOWN INDICATION
     Dosage: UNK
     Route: 065
  5. METHOTREXATE. [Concomitant]
     Active Substance: METHOTREXATE
     Indication: PRODUCT USED FOR UNKNOWN INDICATION
     Dosage: UNK
     Route: 065

REACTIONS (24)
  - Hypertension [Unknown]
  - Pyrexia [Unknown]
  - Nausea [Unknown]
  - Neoplasm malignant [Recovering/Resolving]
  - Cancer surgery [Unknown]
  - Breast cancer [Recovered/Resolved]
  - Oropharyngeal pain [Unknown]
  - Urinary tract infection [Recovered/Resolved]
  - Blood pressure increased [Unknown]
  - Renal disorder [Recovered/Resolved]
  - Cellulitis [Unknown]
  - Cough [Recovered/Resolved]
  - Influenza [Recovered/Resolved]
  - Scab [Unknown]
  - Nasopharyngitis [Recovered/Resolved]
  - Chills [Unknown]
  - Alopecia [Unknown]
  - Nasal congestion [Recovered/Resolved]
  - Rash macular [Unknown]
  - Blood pressure decreased [Unknown]
  - Cyst [Unknown]
  - Breast mass [Recovering/Resolving]
  - Vaginal infection [Unknown]
  - Headache [Recovered/Resolved]

NARRATIVE: CASE EVENT DATE: 20160816
